FAERS Safety Report 25411317 (Version 1)
Quarter: 2025Q2

REPORT INFORMATION
  Report Type: Spontaneous
  Country: TR (occurrence: TR)
  Receive Date: 20250609
  Receipt Date: 20250609
  Transmission Date: 20250716
  Serious: Yes (Hospitalization)
  Sender: JUBILANT
  Company Number: TR-JUBILANT CADISTA PHARMACEUTICALS-2025JUB00074

PATIENT
  Age: 70 Year
  Sex: Female

DRUGS (1)
  1. OXCARBAZEPINE [Suspect]
     Active Substance: OXCARBAZEPINE
     Indication: Trigeminal neuralgia
     Dosage: 150 MG, 2X/DAY

REACTIONS (2)
  - Rhabdomyolysis [Unknown]
  - Acute kidney injury [Recovered/Resolved]
